FAERS Safety Report 16631398 (Version 1)
Quarter: 2019Q3

REPORT INFORMATION
  Report Type: Spontaneous
  Country: DE (occurrence: DE)
  Receive Date: 20190725
  Receipt Date: 20190725
  Transmission Date: 20191004
  Serious: Yes (Hospitalization)
  Sender: FDA-Public Use
  Company Number: DE-PFIZER INC-2019310438

PATIENT
  Age: 76 Year
  Sex: Female

DRUGS (9)
  1. METOPROLOL. [Concomitant]
     Active Substance: METOPROLOL
     Dosage: 95 MG, 1-0-0.5-0
  2. AMLODIPINE [Concomitant]
     Active Substance: AMLODIPINE BESYLATE
     Dosage: 5 MG, 1-0-1-0
  3. SIMVASTATIN. [Concomitant]
     Active Substance: SIMVASTATIN
     Dosage: 20 MG, 0-0-0.5-0
  4. IBUPROFEN. [Suspect]
     Active Substance: IBUPROFEN
     Dosage: 400 MG, MIN. 2X400 MG/D; SINCE BEGINNING OF NOV.
  5. ACTRAPID [Concomitant]
     Active Substance: INSULIN HUMAN
     Dosage: NK IE, 12-10-14-0
     Route: 058
  6. METAMIZOLE [Concomitant]
     Active Substance: METAMIZOLE
     Dosage: 500 MG, 2-0-2-0
  7. EBRANTIL [URAPIDIL] [Concomitant]
     Active Substance: URAPIDIL
     Dosage: 30 MG, 2-0-2-0
  8. HYDROCHLOROTHIAZIDE/VALSARTAN [Concomitant]
     Dosage: 320|25 MG, 1-0-0-0
  9. SULPIRIDE [Concomitant]
     Active Substance: SULPIRIDE
     Dosage: NK MG, 0.5-0-0-0

REACTIONS (1)
  - Hypertension [Recovered/Resolved]

NARRATIVE: CASE EVENT DATE: 20171121
